FAERS Safety Report 5855610-1 (Version None)
Quarter: 2008Q3

REPORT INFORMATION
  Report Type: 
  Country: None (occurrence: None)
  Receive Date: 20080821
  Receipt Date: 20080808
  Transmission Date: 20090109
  Serious: Yes (Other)
  Sender: FDA-Public Use
  Company Number: 2008SP016318

PATIENT
  Sex: Male

DRUGS (1)
  1. CORICIDIN [Suspect]
     Indication: DRUG USE FOR UNKNOWN INDICATION
     Dosage: PO
     Route: 048
     Dates: start: 20080801

REACTIONS (3)
  - INCORRECT DOSE ADMINISTERED [None]
  - MANIA [None]
  - PSYCHOMOTOR HYPERACTIVITY [None]
